FAERS Safety Report 7846831-7 (Version None)
Quarter: 2011Q4

REPORT INFORMATION
  Report Type: 
  Country: None (occurrence: None)
  Receive Date: 20111025
  Receipt Date: 20111014
  Transmission Date: 20120403
  Serious: Yes (Other)
  Sender: FDA-Public Use
  Company Number: US-BAXTER-2011BH032870

PATIENT
  Age: 15 Year
  Sex: Male

DRUGS (10)
  1. SODIUM CHLORIDE [Concomitant]
     Indication: PRODUCT USED FOR UNKNOWN INDICATION
     Route: 040
  2. INFUVITE ADULT [Suspect]
     Indication: PARENTERAL NUTRITION
     Route: 042
  3. ESOMEPRAZOLE SODIUM [Concomitant]
     Indication: PRODUCT USED FOR UNKNOWN INDICATION
     Route: 042
  4. ACYCLOVIR [Suspect]
     Indication: PARENTERAL NUTRITION
     Route: 042
  5. INTRALIPID 20% [Suspect]
     Indication: PARENTERAL NUTRITION
     Route: 042
  6. FLUCONAZOLE [Concomitant]
     Indication: PRODUCT USED FOR UNKNOWN INDICATION
     Route: 042
  7. MORPHINE SULFATE [Concomitant]
     Indication: PAIN
     Route: 042
  8. SODIUM CHLORIDE [Concomitant]
     Route: 065
  9. ANALGESIC [Concomitant]
     Indication: PAIN
     Route: 065
  10. 5% DEXTROSE 0.45% SODIUM CHLORIDE AND POTASSIUM CHLORIDE INJECTIONS IN [Concomitant]
     Indication: PRODUCT USED FOR UNKNOWN INDICATION
     Route: 065

REACTIONS (1)
  - HYPERSENSITIVITY [None]
